FAERS Safety Report 7296909-4 (Version None)
Quarter: 2011Q1

REPORT INFORMATION
  Report Type: 
  Country: None (occurrence: None)
  Receive Date: 20110216
  Receipt Date: 20110209
  Transmission Date: 20110831
  Serious: Yes (Other)
  Sender: FDA-Public Use
  Company Number: GB-JNJFOC-20101207772

PATIENT
  Age: 36 Year
  Sex: Female

DRUGS (6)
  1. RISPERDONE [Suspect]
     Indication: PRODUCT USED FOR UNKNOWN INDICATION
     Route: 048
  2. ZAPONEX [Interacting]
     Indication: PRODUCT USED FOR UNKNOWN INDICATION
     Route: 048
  3. PROVERA [Concomitant]
     Indication: CONTRACEPTION
     Route: 030
  4. METFORMIN [Concomitant]
     Indication: DIABETES MELLITUS
     Route: 048
  5. OXYBUTYNIN [Concomitant]
     Indication: URINARY INCONTINENCE
     Route: 048
  6. VALPROIC ACID [Concomitant]
     Indication: BIPOLAR DISORDER
     Route: 048

REACTIONS (6)
  - DECREASED APPETITE [None]
  - DRUG INTERACTION [None]
  - ORTHOSTATIC HYPOTENSION [None]
  - DIZZINESS [None]
  - FALL [None]
  - HYPOTENSION [None]
